FAERS Safety Report 20679894 (Version 1)
Quarter: 2022Q2

REPORT INFORMATION
  Report Type: Spontaneous
  Country: FR (occurrence: FR)
  Receive Date: 20220406
  Receipt Date: 20220406
  Transmission Date: 20220721
  Serious: Yes (Other)
  Sender: FDA-Public Use
  Company Number: None

PATIENT
  Sex: Male
  Weight: 66 kg

DRUGS (1)
  1. NEURONTIN [Suspect]
     Active Substance: GABAPENTIN
     Indication: Neuralgia
     Dosage: 1800 MG, 1X/DAY
     Route: 048
     Dates: start: 2012, end: 202107

REACTIONS (7)
  - Depression [Recovered/Resolved]
  - Anxiety [Recovered/Resolved]
  - Withdrawal syndrome [Recovered/Resolved]
  - Dizziness [Recovered/Resolved]
  - Affect lability [Recovered/Resolved]
  - Dermatitis psoriasiform [Recovered/Resolved]
  - Suicide attempt [Unknown]

NARRATIVE: CASE EVENT DATE: 20120101
